FAERS Safety Report 5421610-9 (Version None)
Quarter: 2007Q3

REPORT INFORMATION
  Report Type: 
  Country: None (occurrence: None)
  Receive Date: 20070817
  Receipt Date: 20070803
  Transmission Date: 20080115
  Serious: Yes (Death)
  Sender: FDA-Public Use
  Company Number: 2007US001168

PATIENT
  Age: 83 Year
  Sex: Female

DRUGS (12)
  1. AMBISOME [Suspect]
     Indication: MENINGITIS CRYPTOCOCCAL
     Dosage: 20 MG, UID/QD, IV NOS
     Route: 042
     Dates: start: 20070410, end: 20070425
  2. ISONIAZID [Suspect]
     Indication: MENINGITIS CRYPTOCOCCAL
     Dosage: 300 MG, UID/QD, ORAL
     Route: 048
     Dates: start: 20070406, end: 20070416
  3. NEO-MINOPHAGEN C (GLYCYRRHIZIC ACID, AMMONIUM SALT) [Concomitant]
  4. METILON (METAMIZOLE SODIUM) [Concomitant]
  5. LASIX [Concomitant]
  6. INTEBAN SP (INDOMETACIN) [Concomitant]
  7. ETHAMBUTOL DIHYDROCHLORIDE (ETHAMBUTOL DIHYDROCHLORIDE) [Concomitant]
  8. PYRAZINAMIDE [Concomitant]
  9. PYDOXAL (PYRIDOXAL PHOSPHATE) [Concomitant]
  10. DECADRON [Concomitant]
  11. ADALAT [Concomitant]
  12. RIMACTANE [Concomitant]

REACTIONS (11)
  - BACTERAEMIA [None]
  - BLOOD ALBUMIN DECREASED [None]
  - CHOLESTASIS [None]
  - CONDITION AGGRAVATED [None]
  - HEPATIC FUNCTION ABNORMAL [None]
  - MENINGIOMA [None]
  - MENINGITIS FUNGAL [None]
  - MULTI-ORGAN FAILURE [None]
  - RENAL IMPAIRMENT [None]
  - SEPSIS [None]
  - URINE OUTPUT DECREASED [None]
